FAERS Safety Report 9646036 (Version 1)
Quarter: 2013Q4

REPORT INFORMATION
  Report Type: Spontaneous
  Country: US (occurrence: US)
  Receive Date: 20131025
  Receipt Date: 20131025
  Transmission Date: 20140711
  Serious: Yes (Other)
  Sender: FDA-Public Use
  Company Number: US-PFIZER INC-2013304338

PATIENT
  Sex: Female

DRUGS (4)
  1. LIPITOR [Suspect]
     Dosage: UNK
     Dates: start: 1984
  2. LYRICA [Suspect]
     Dosage: UNK
     Dates: start: 2011
  3. LYRICA [Suspect]
     Dosage: UNK
     Dates: start: 201208
  4. PREMPRO [Suspect]
     Dosage: UNK

REACTIONS (4)
  - Rheumatoid arthritis [Unknown]
  - Back disorder [Unknown]
  - Fibromyalgia [Unknown]
  - Fatigue [Unknown]
